FAERS Safety Report 7197658-3 (Version None)
Quarter: 2010Q4

REPORT INFORMATION
  Report Type: 
  Country: None (occurrence: None)
  Receive Date: 20101227
  Receipt Date: 20101215
  Transmission Date: 20110411
  Serious: Yes (Death)
  Sender: FDA-Public Use
  Company Number: JP-SANOFI-AVENTIS-2010SA071616

PATIENT
  Age: 64 Year
  Sex: Male
  Weight: 45 kg

DRUGS (4)
  1. ELPLAT [Suspect]
     Indication: COLON CANCER
     Route: 041
     Dates: start: 20101119, end: 20101119
  2. FLUOROURACIL [Suspect]
     Indication: COLON CANCER
     Route: 040
     Dates: start: 20101119, end: 20101119
  3. FLUOROURACIL [Suspect]
     Route: 041
     Dates: start: 20101119, end: 20101119
  4. CALCIUM LEVOFOLINATE [Concomitant]
     Indication: COLON CANCER
     Route: 041
     Dates: start: 20101119, end: 20101119

REACTIONS (3)
  - CARDIAC ARREST [None]
  - CONFUSIONAL STATE [None]
  - VENTRICULAR FIBRILLATION [None]
